FAERS Safety Report 17586646 (Version 1)
Quarter: 2020Q1

REPORT INFORMATION
  Report Type: Spontaneous
  Country: US (occurrence: US)
  Receive Date: 20200326
  Receipt Date: 20200326
  Transmission Date: 20200409
  Serious: Yes (Hospitalization)
  Sender: FDA-Public Use
  Company Number: US-ASTRAZENECA-2020SE41252

PATIENT
  Age: 83 Year
  Sex: Female
  Weight: 70.8 kg

DRUGS (2)
  1. VITAMIN [Concomitant]
     Active Substance: VITAMINS
     Route: 065
  2. BYDUREON [Suspect]
     Active Substance: EXENATIDE
     Indication: DIABETES MELLITUS
     Route: 065

REACTIONS (5)
  - Spinal stenosis [Unknown]
  - Incorrect dose administered by product [Unknown]
  - Wrong technique in device usage process [Unknown]
  - Injection site pain [Unknown]
  - Device issue [Unknown]
